FAERS Safety Report 14728814 (Version 1)
Quarter: 2018Q2

REPORT INFORMATION
  Report Type: Spontaneous
  Country: US (occurrence: US)
  Receive Date: 20180402
  Receipt Date: 20180402
  Transmission Date: 20180711
  Serious: Yes (Other)
  Sender: FDA-Public Use
  Company Number: None

PATIENT
  Age: 60 Year
  Sex: Female
  Weight: 56.7 kg

DRUGS (7)
  1. FLUOROMETHOLONE OPTHALMIC SUSPENSION [Suspect]
     Active Substance: FLUOROMETHOLONE ACETATE
     Indication: CORNEAL TRANSPLANT
     Dosage: ?          QUANTITY:1 GTT DROP(S);?
     Route: 047
     Dates: start: 20180123, end: 20180126
  2. PROBIOTIC [Suspect]
     Active Substance: PROBIOTICS NOS
  3. VITAMIN D [Concomitant]
     Active Substance: CHOLECALCIFEROL
  4. CALCIUM [Concomitant]
     Active Substance: CALCIUM
  5. LOTEMAX [Concomitant]
     Active Substance: LOTEPREDNOL ETABONATE
  6. VITAMIN B12 [Concomitant]
     Active Substance: CYANOCOBALAMIN
  7. PREDNISOLONE EYE DROPS [Concomitant]

REACTIONS (5)
  - Product substitution issue [None]
  - Insomnia [None]
  - Skin fissures [None]
  - Eyelid irritation [None]
  - Eye irritation [None]

NARRATIVE: CASE EVENT DATE: 20180125
